FAERS Safety Report 7338158-7 (Version None)
Quarter: 2011Q1

REPORT INFORMATION
  Report Type: 
  Country: None (occurrence: None)
  Receive Date: 20110308
  Receipt Date: 20110223
  Transmission Date: 20110831
  Serious: Yes (Hospitalization)
  Sender: FDA-Public Use
  Company Number: FR-ELI_LILLY_AND_COMPANY-FR201103000963

PATIENT
  Sex: Female

DRUGS (7)
  1. LOXAPINE HCL [Concomitant]
     Dosage: UNK, UNKNOWN
     Dates: start: 20080901
  2. IMOVANE [Concomitant]
     Dosage: UNK, UNKNOWN
     Dates: start: 20060101
  3. CYMBALTA [Suspect]
     Dosage: 60 MG, 2/D
     Route: 048
     Dates: start: 20080501, end: 20080831
  4. LOXAPINE HCL [Concomitant]
     Dosage: 100 MG, UNKNOWN
     Dates: end: 20080831
  5. PARKINANE [Concomitant]
     Dosage: 5 MG, UNKNOWN
     Dates: end: 20080831
  6. NEXIUM [Concomitant]
     Dosage: 40 MG, UNKNOWN
     Dates: start: 20050101
  7. GAVISCON /GFR/ [Concomitant]
     Dosage: UNK, UNKNOWN

REACTIONS (3)
  - C-REACTIVE PROTEIN INCREASED [None]
  - URTICARIA [None]
  - DIZZINESS [None]
